FAERS Safety Report 12071799 (Version 2)
Quarter: 2016Q1

REPORT INFORMATION
  Report Type: Spontaneous
  Country: US (occurrence: US)
  Receive Date: 20160212
  Receipt Date: 20160331
  Transmission Date: 20160526
  Serious: No
  Sender: FDA-Public Use
  Company Number: US-ASTRAZENECA-2016SE14423

PATIENT
  Age: 64 Year
  Sex: Male
  Weight: 84 kg

DRUGS (2)
  1. MULTIVITAMINS [Concomitant]
     Active Substance: VITAMINS
  2. NEXIUM 24HR [Suspect]
     Active Substance: ESOMEPRAZOLE MAGNESIUM
     Indication: GASTROOESOPHAGEAL REFLUX DISEASE
     Route: 048

REACTIONS (4)
  - Product use issue [Not Recovered/Not Resolved]
  - Product quality issue [Recovered/Resolved]
  - Feeling abnormal [Recovered/Resolved]
  - Poor quality drug administered [Recovered/Resolved]

NARRATIVE: CASE EVENT DATE: 201601
